FAERS Safety Report 23656002 (Version 2)
Quarter: 2024Q1

REPORT INFORMATION
  Report Type: Spontaneous
  Country: BR (occurrence: BR)
  Receive Date: 20240321
  Receipt Date: 20240327
  Transmission Date: 20240409
  Serious: Yes (Hospitalization, Other)
  Sender: FDA-Public Use
  Company Number: BR-GALDERMA-BR2024004590

PATIENT

DRUGS (1)
  1. EPIDUO [Suspect]
     Active Substance: ADAPALENE\BENZOYL PEROXIDE
     Indication: Product used for unknown indication
     Dosage: 1 DOSAGE FORM, USED THE PRODUCT TWICE
     Route: 061
     Dates: start: 20240307, end: 20240308

REACTIONS (4)
  - Anaphylactic reaction [Unknown]
  - Tachycardia [Unknown]
  - Throat tightness [Unknown]
  - Hypersensitivity [Unknown]

NARRATIVE: CASE EVENT DATE: 20240301
